FAERS Safety Report 4453993-0 (Version None)
Quarter: 2004Q3

REPORT INFORMATION
  Report Type: 
  Country: None (occurrence: None)
  Receive Date: 20040902
  Receipt Date: 20040702
  Transmission Date: 20050211
  Serious: No
  Sender: FDA-Public Use
  Company Number: 200418969BWH

PATIENT
  Age: 55 Year
  Sex: Male

DRUGS (6)
  1. LEVITRA [Suspect]
     Indication: ERECTILE DYSFUNCTION
     Dosage: 10 MG, QD, ORAL
     Route: 048
     Dates: start: 20040601
  2. MORPHINE [Concomitant]
  3. KADIAN [Concomitant]
  4. TEMAZEPAM [Concomitant]
  5. PROSOM [Concomitant]
  6. METHADONE HCL [Concomitant]

REACTIONS (1)
  - ERECTILE DYSFUNCTION [None]
